FAERS Safety Report 8445441-0 (Version None)
Quarter: 2012Q2

REPORT INFORMATION
  Report Type: 
  Country: None (occurrence: None)
  Receive Date: 20120618
  Receipt Date: 20120430
  Transmission Date: 20120825
  Serious: Yes (Death)
  Sender: FDA-Public Use
  Company Number: US-TEVA-333926USA

PATIENT
  Sex: Male

DRUGS (3)
  1. FAMOTIDINE [Concomitant]
     Dosage: 20 MILLIGRAM;
     Route: 048
  2. MORPHINE SULFATE [Concomitant]
     Indication: CANCER PAIN
  3. FENTORA [Suspect]
     Indication: CANCER PAIN
     Dosage: 1200 MICROGRAM;
     Route: 002
     Dates: start: 20120401

REACTIONS (1)
  - LUNG CARCINOMA CELL TYPE UNSPECIFIED STAGE IV [None]
